FAERS Safety Report 15976486 (Version 1)
Quarter: 2019Q1

REPORT INFORMATION
  Report Type: Spontaneous
  Country: NL (occurrence: NL)
  Receive Date: 20190218
  Receipt Date: 20190218
  Transmission Date: 20190418
  Serious: Yes (Other)
  Sender: FDA-Public Use
  Company Number: NL-SA-CHOL-1000481

PATIENT
  Age: 20 Year
  Sex: Female
  Weight: 56 kg

DRUGS (5)
  1. COLESEVELAM HYDROCHLORIDE. [Suspect]
     Active Substance: COLESEVELAM HYDROCHLORIDE
     Dosage: 3125 MG,QD
     Route: 048
     Dates: start: 20100204
  2. EZETIMIBE. [Suspect]
     Active Substance: EZETIMIBE
     Indication: HYPERCHOLESTEROLAEMIA
     Dosage: 10 MG,QD
     Route: 048
     Dates: start: 20070913, end: 20091218
  3. MICROGYNON 21 [Concomitant]
     Indication: CONTRACEPTION
     Dosage: 1 DF, QD
     Route: 048
     Dates: start: 20040802, end: 20091218
  4. ATORVASTATIN CALCIUM. [Suspect]
     Active Substance: ATORVASTATIN CALCIUM
     Indication: HYPERCHOLESTEROLAEMIA
     Dosage: 80 MG,QD
     Route: 048
     Dates: start: 20051215, end: 20091218
  5. COLESEVELAM HYDROCHLORIDE. [Suspect]
     Active Substance: COLESEVELAM HYDROCHLORIDE
     Indication: HYPERCHOLESTEROLAEMIA
     Dosage: 2500MG, QD
     Route: 048
     Dates: start: 20090928, end: 20091218

REACTIONS (3)
  - Vomiting [Recovered/Resolved]
  - Anembryonic gestation [Recovered/Resolved]
  - Abortion spontaneous [Not Recovered/Not Resolved]

NARRATIVE: CASE EVENT DATE: 200911
